APPROVED DRUG PRODUCT: OSELTAMIVIR PHOSPHATE
Active Ingredient: OSELTAMIVIR PHOSPHATE
Strength: EQ 6MG BASE/ML
Dosage Form/Route: FOR SUSPENSION;ORAL
Application: A211894 | Product #001 | TE Code: AB
Applicant: STRIDES PHARMA GLOBAL PTE LTD
Approved: Jan 13, 2022 | RLD: No | RS: No | Type: RX